FAERS Safety Report 4706959-7 (Version None)
Quarter: 2005Q2

REPORT INFORMATION
  Report Type: 
  Country: None (occurrence: None)
  Receive Date: 20050630
  Receipt Date: 20050621
  Transmission Date: 20051028
  Serious: Yes (Death)
  Sender: FDA-Public Use
  Company Number: 2005S1005230

PATIENT
  Age: 27 Year
  Sex: Female

DRUGS (19)
  1. CLOZAPINE [Suspect]
     Dosage: 50 MG, TID; PO
     Route: 048
     Dates: start: 20050101, end: 20050601
  2. CLOZAPINE [Suspect]
     Dosage: 500 MG; HS; PO
     Route: 048
     Dates: start: 20050101, end: 20050601
  3. ATENOLOL [Concomitant]
  4. CLONAZEPAM [Concomitant]
  5. MEDROXYPROGESTERONE [Concomitant]
  6. ACETATE [Concomitant]
  7. DOCUSATE SODIUM [Concomitant]
  8. FERROUS SULFATE TAB [Concomitant]
  9. INSULIN HUMAN INJECTION, ISOPHANE/INSULIN HUMAN [Concomitant]
  10. ZINC SUSPENSION [Concomitant]
  11. LEVOTHYROXINE SODIUM [Concomitant]
  12. ATORVASTATIN CALCIUM [Concomitant]
  13. LITHIUM CARBONATE [Concomitant]
  14. MELATONIN [Concomitant]
  15. OMEPRAZOLE [Concomitant]
  16. DOCUSATE SODIUM/SENNA [Concomitant]
  17. QUETIAPINE FUMARATE [Concomitant]
  18. TOPIRAMATE [Concomitant]
  19. WARFARIN [Concomitant]

REACTIONS (1)
  - DEATH [None]
